FAERS Safety Report 7024899-8 (Version None)
Quarter: 2010Q4

REPORT INFORMATION
  Report Type: 
  Country: None (occurrence: None)
  Receive Date: 20101001
  Receipt Date: 20100924
  Transmission Date: 20110411
  Serious: Yes (Other)
  Sender: FDA-Public Use
  Company Number: FR-GILEAD-2010-0030162

PATIENT
  Sex: Male
  Weight: 84 kg

DRUGS (5)
  1. ATRIPLA [Suspect]
     Indication: HIV INFECTION
     Route: 048
     Dates: start: 20090928, end: 20100531
  2. TRUVADA [Concomitant]
     Indication: HIV INFECTION
     Route: 048
     Dates: start: 20080924, end: 20090928
  3. SUSTIVA [Concomitant]
     Indication: HIV INFECTION
     Route: 048
     Dates: start: 20080924, end: 20090928
  4. PEGASYS [Concomitant]
     Indication: HEPATITIS C
     Route: 058
     Dates: start: 20050101, end: 20100401
  5. PEGASYS [Concomitant]
     Indication: PROPHYLAXIS

REACTIONS (4)
  - DEPRESSION [None]
  - NIGHTMARE [None]
  - SLEEP DISORDER [None]
  - SUICIDAL IDEATION [None]
